FAERS Safety Report 7355284-7 (Version None)
Quarter: 2011Q1

REPORT INFORMATION
  Report Type: 
  Country: None (occurrence: None)
  Receive Date: 20110316
  Receipt Date: 20110309
  Transmission Date: 20110831
  Serious: Yes (Disabling)
  Sender: FDA-Public Use
  Company Number: JP-ROCHE-674694

PATIENT
  Sex: Female

DRUGS (5)
  1. PEGASYS [Suspect]
     Route: 058
     Dates: start: 20080229, end: 20090717
  2. LIVALO [Concomitant]
     Route: 048
     Dates: start: 20050719
  3. NEO-MINOPHAGEN C [Concomitant]
     Route: 042
     Dates: start: 20080613, end: 20090724
  4. COPEGUS [Suspect]
     Route: 048
     Dates: start: 20080229, end: 20090724
  5. BLOPRESS [Concomitant]
     Route: 048
     Dates: start: 20040921

REACTIONS (1)
  - HEPATIC CIRRHOSIS [None]
